FAERS Safety Report 6423996-5 (Version None)
Quarter: 2009Q4

REPORT INFORMATION
  Report Type: 
  Country: None (occurrence: None)
  Receive Date: 20091102
  Receipt Date: 20091028
  Transmission Date: 20100525
  Serious: Yes (Life-Threatening, Other)
  Sender: FDA-Public Use
  Company Number: PHHY2009BR47003

PATIENT
  Age: 31 Year
  Sex: Male
  Weight: 60 kg

DRUGS (2)
  1. VOLTAREN [Suspect]
     Indication: BONE PAIN
     Dosage: 75MG/3ML 5AMP
  2. DORFLEX [Concomitant]
     Indication: HEADACHE

REACTIONS (11)
  - BLOOD PRESSURE INCREASED [None]
  - BONE PAIN [None]
  - DIZZINESS [None]
  - ERYTHEMA [None]
  - FEELING ABNORMAL [None]
  - HYPERHIDROSIS [None]
  - HYPERSENSITIVITY [None]
  - PRURITUS [None]
  - RASH [None]
  - VISUAL IMPAIRMENT [None]
  - WEIGHT DECREASED [None]
